FAERS Safety Report 8591725-5 (Version None)
Quarter: 2012Q3

REPORT INFORMATION
  Report Type: 
  Country: None (occurrence: None)
  Receive Date: 20120814
  Receipt Date: 20120807
  Transmission Date: 20120928
  Serious: No
  Sender: FDA-Public Use
  Company Number: PHHY2012JP069771

PATIENT
  Sex: Male

DRUGS (1)
  1. ILARIS [Suspect]
     Indication: CRYOPYRIN ASSOCIATED PERIODIC SYNDROME
     Dosage: 150 MG, ONCE EVERY 4 WEEKS
     Route: 058

REACTIONS (7)
  - WOUND SECRETION [None]
  - SKIN EXFOLIATION [None]
  - IMPETIGO [None]
  - CONTUSION [None]
  - VOMITING [None]
  - HEADACHE [None]
  - DRUG EFFECT DECREASED [None]
